FAERS Safety Report 13258896 (Version 7)
Quarter: 2019Q3

REPORT INFORMATION
  Report Type: Report from Study
  Country: DE (occurrence: DE)
  Receive Date: 20170222
  Receipt Date: 20190830
  Transmission Date: 20191004
  Serious: Yes (Life-Threatening, Hospitalization, Other)
  Sender: FDA-Public Use
  Company Number: DE-AMGEN-DEUCT2017026565

PATIENT
  Age: 61 Year
  Sex: Female

DRUGS (7)
  1. 5-FU [Suspect]
     Active Substance: FLUOROURACIL
     Indication: COLORECTAL CANCER METASTATIC
     Dosage: 1800 MILLIGRAM/SQ. METER
     Route: 042
     Dates: start: 20141028, end: 20150630
  2. FOLINIC ACID [Suspect]
     Active Substance: LEUCOVORIN
     Indication: COLORECTAL CANCER METASTATIC
     Dosage: 293 MILLIGRAM/SQ. METER
     Route: 042
     Dates: start: 20141028, end: 20150630
  3. PANITUMUMAB [Suspect]
     Active Substance: PANITUMUMAB
     Dosage: 266 MG, Q2WK
     Route: 042
     Dates: start: 20150303, end: 20150630
  4. PANITUMUMAB [Suspect]
     Active Substance: PANITUMUMAB
     Dosage: 374 MG, Q2WK
     Route: 042
     Dates: start: 20141209
  5. PANITUMUMAB [Suspect]
     Active Substance: PANITUMUMAB
     Dosage: 355 MG, Q2WK
     Route: 042
     Dates: start: 20150106, end: 20150203
  6. OXALIPLATIN. [Suspect]
     Active Substance: OXALIPLATIN
     Indication: COLORECTAL CANCER METASTATIC
     Dosage: 63 MILLIGRAM/SQ. METER
     Route: 042
     Dates: start: 20141028, end: 20150120
  7. PANITUMUMAB [Suspect]
     Active Substance: PANITUMUMAB
     Indication: COLORECTAL CANCER METASTATIC
     Dosage: 468 MG, Q2WK
     Route: 042
     Dates: start: 20141028

REACTIONS (1)
  - Acute myeloid leukaemia [Recovered/Resolved]

NARRATIVE: CASE EVENT DATE: 20170125
